FAERS Safety Report 7405363 (Version 4)
Quarter: 2013Q4

REPORT INFORMATION
  Report Type: Spontaneous
  Country: US (occurrence: US)
  Receive Date: 20100601
  Receipt Date: 20131223
  Transmission Date: 20140711
  Serious: Yes (Other)
  Sender: FDA-Public Use
  Company Number: US-BAYER-201023617NA

PATIENT
  Age: 33 Year
  Sex: Female
  Weight: 86.17 kg

DRUGS (9)
  1. YASMIN [Suspect]
     Indication: ORAL CONTRACEPTION
     Dosage: UNK UNK, UNK
     Route: 048
     Dates: start: 200803, end: 200908
  2. OCELLA [Suspect]
     Indication: ORAL CONTRACEPTION
     Dosage: UNK UNK, UNK
     Route: 048
     Dates: start: 200803, end: 200908
  3. MELOXICAM [Concomitant]
     Indication: BACK DISORDER
     Dosage: UNK
     Dates: start: 200712, end: 200912
  4. TOPAMAX [Concomitant]
     Indication: MIGRAINE
     Dosage: UNK
     Dates: start: 200811
  5. SUMATRIPTAN [Concomitant]
     Indication: MIGRAINE
  6. LISINOPRIL [Concomitant]
  7. OMEPRAZOLE [Concomitant]
  8. ORLISTAT [Concomitant]
  9. HYDROCHLOROTHIAZIDE [Concomitant]

REACTIONS (5)
  - Cholelithiasis [Unknown]
  - Cholecystitis chronic [None]
  - Abdominal pain [Unknown]
  - Chest pain [Unknown]
  - Abdominal pain [Unknown]
